FAERS Safety Report 4386388-9 (Version None)
Quarter: 2004Q2

REPORT INFORMATION
  Report Type: 
  Country: None (occurrence: None)
  Receive Date: 20040625
  Receipt Date: 20040625
  Transmission Date: 20050107
  Serious: Yes (Hospitalization)
  Sender: FDA-Public Use
  Company Number: None

PATIENT
  Age: 51 Year
  Sex: Female
  Weight: 80 kg

DRUGS (1)
  1. REMICADE [Suspect]
     Indication: CROHN'S DISEASE
     Dosage: 400 MG Q2-4WKS IV
     Route: 042
     Dates: start: 20040505, end: 20040617

REACTIONS (3)
  - ARTHRALGIA [None]
  - MENINGITIS ASEPTIC [None]
  - MYALGIA [None]
